FAERS Safety Report 14475253 (Version 1)
Quarter: 2018Q1

REPORT INFORMATION
  Report Type: Spontaneous
  Country: IN (occurrence: IN)
  Receive Date: 20180201
  Receipt Date: 20180201
  Transmission Date: 20180509
  Serious: Yes (Other)
  Sender: FDA-Public Use
  Company Number: IN-VERNALIS THERAPEUTICS, INC.-2018VRN00005

PATIENT
  Age: 11 Year
  Sex: Male
  Weight: 35 kg

DRUGS (10)
  1. BUPIVACAINE 0.375% [Concomitant]
     Indication: ANAESTHESIA
     Dosage: 10 ML
     Route: 042
  2. SUXAMETHONIUM [Concomitant]
     Active Substance: SUCCINYLCHOLINE
     Indication: INDUCTION OF ANAESTHESIA
     Dosage: 70 MG, UNK
     Route: 042
  3. 1% LIGNOCAINE WITH ADRENALINE [Concomitant]
     Indication: ANAESTHESIA
     Dosage: 10 ML
     Route: 042
  4. AMOXICILLIN CLAVULANATE [Suspect]
     Active Substance: AMOXICILLIN\CLAVULANIC ACID
     Dosage: 600 MG, ONCE
     Route: 042
  5. MIDAZOLAM [Concomitant]
     Active Substance: MIDAZOLAM HYDROCHLORIDE
     Indication: PREMEDICATION
     Dosage: 0.75 MG, UNK
     Route: 042
  6. PROPOFOL. [Concomitant]
     Active Substance: PROPOFOL
     Indication: INDUCTION OF ANAESTHESIA
     Dosage: 70 MG, UNK
     Route: 042
  7. ATRACURIUM [Concomitant]
     Active Substance: ATRACURIUM
     Indication: MUSCLE RELAXANT THERAPY
     Route: 065
  8. AMOXICILLIN CLAVULANATE [Suspect]
     Active Substance: AMOXICILLIN\CLAVULANIC ACID
     Indication: ANTIBIOTIC PROPHYLAXIS
     Dosage: 600 MG, ONCE
     Route: 042
  9. FENTANYL. [Concomitant]
     Active Substance: FENTANYL
     Indication: PREMEDICATION
     Dosage: 50 ?G, UNK
     Route: 042
  10. GLYCOPYROLATE [Concomitant]
     Active Substance: GLYCOPYRROLATE
     Indication: INDUCTION OF ANAESTHESIA
     Dosage: 20 ?G, UNK
     Route: 042

REACTIONS (3)
  - Ventricular extrasystoles [Recovered/Resolved]
  - Chest pain [Recovered/Resolved]
  - Drug hypersensitivity [Recovered/Resolved]
